FAERS Safety Report 23606157 (Version 13)
Quarter: 2024Q4

REPORT INFORMATION
  Report Type: Report from Study
  Country: DE (occurrence: DE)
  Receive Date: 20240307
  Receipt Date: 20241008
  Transmission Date: 20250115
  Serious: Yes (Other)
  Sender: TAKEDA
  Company Number: DE-TAKEDA-2024TUS017303

PATIENT
  Age: 25 Year
  Sex: Female
  Weight: 75 kg

DRUGS (6)
  1. ADAMTS13, RECOMBINANT-KRHN [Suspect]
     Active Substance: ADAMTS13, RECOMBINANT-KRHN
     Indication: Thrombotic thrombocytopenic purpura
     Dosage: UNK
     Route: 042
     Dates: start: 20240206
  2. ADAMTS13, RECOMBINANT-KRHN [Suspect]
     Active Substance: ADAMTS13, RECOMBINANT-KRHN
     Dosage: 1500 INTERNATIONAL UNIT, BID
     Route: 042
  3. ADAMTS13, RECOMBINANT-KRHN [Suspect]
     Active Substance: ADAMTS13, RECOMBINANT-KRHN
     Dosage: 3000 INTERNATIONAL UNIT, 2/WEEK
     Route: 042
  4. FOLINAL [Concomitant]
     Indication: Breast feeding
     Dosage: 200 MILLIGRAM, QD
     Route: 048
     Dates: start: 20240617
  5. FERROUS SULFATE [Concomitant]
     Active Substance: FERROUS SULFATE
     Dosage: UNK
     Route: 065
  6. FOLIC ACID [Concomitant]
     Active Substance: FOLIC ACID
     Indication: Lactation insufficiency
     Dosage: 5 MILLIGRAM, QD
     Route: 048
     Dates: start: 20231014

REACTIONS (14)
  - Placental insufficiency [Unknown]
  - Vulvovaginal injury [Unknown]
  - Vaginal haemorrhage [Unknown]
  - Pregnancy [Recovered/Resolved]
  - Abdominal pain upper [Recovered/Resolved]
  - Vaginal infection [Recovered/Resolved]
  - Arthralgia [Recovered/Resolved]
  - Fungal infection [Unknown]
  - Nasopharyngitis [Recovered/Resolved]
  - Vulvovaginal mycotic infection [Recovered/Resolved]
  - Breast feeding [Not Recovered/Not Resolved]
  - Breast pain [Recovered/Resolved]
  - Asthenia [Recovered/Resolved]
  - Abdominal pain [Recovered/Resolved]

NARRATIVE: CASE EVENT DATE: 20240219
